FAERS Safety Report 8015022-1 (Version None)
Quarter: 2011Q4

REPORT INFORMATION
  Report Type: 
  Country: None (occurrence: None)
  Receive Date: 20111230
  Receipt Date: 20111223
  Transmission Date: 20120403
  Serious: No
  Sender: FDA-Public Use
  Company Number: US-BIOGENIDEC-2010BI027909

PATIENT
  Age: 45 Year
  Sex: Female

DRUGS (3)
  1. AVONEX [Concomitant]
     Indication: MULTIPLE SCLEROSIS
     Route: 030
     Dates: start: 20051108
  2. TYSABRI [Suspect]
     Indication: MULTIPLE SCLEROSIS
     Route: 042
     Dates: start: 20090505
  3. AVONEX [Concomitant]
     Route: 030

REACTIONS (11)
  - GAIT DISTURBANCE [None]
  - HOT FLUSH [None]
  - MULTIPLE SCLEROSIS RELAPSE [None]
  - FALL [None]
  - FOOT FRACTURE [None]
  - NUCLEAR MAGNETIC RESONANCE IMAGING ABNORMAL [None]
  - DYSSTASIA [None]
  - RESPIRATORY TRACT INFECTION [None]
  - BRONCHITIS [None]
  - NASAL MUCOSAL DISORDER [None]
  - HEADACHE [None]
